FAERS Safety Report 7880687-1 (Version None)
Quarter: 2011Q4

REPORT INFORMATION
  Report Type: 
  Country: None (occurrence: None)
  Receive Date: 20111101
  Receipt Date: 20111024
  Transmission Date: 20120403
  Serious: Yes (Death, Other)
  Sender: FDA-Public Use
  Company Number: US-BAYER-2011-052686

PATIENT
  Sex: Female
  Weight: 71 kg

DRUGS (28)
  1. MAGNEVIST [Suspect]
     Indication: NUCLEAR MAGNETIC RESONANCE IMAGING ABDOMINAL
     Dosage: UNK
     Dates: start: 20010731, end: 20010731
  2. MINOXIDIL [Concomitant]
  3. PROCARDIA [Concomitant]
  4. COUMADIN [Concomitant]
  5. FOSRENOL [Concomitant]
     Indication: RENAL FAILURE CHRONIC
     Dosage: 1000 MG, TID
  6. GADOLINIUM IN UNSPECIFIED DRUG [Suspect]
     Indication: NUCLEAR MAGNETIC RESONANCE IMAGING
     Dosage: UNK
     Dates: start: 19971106, end: 19971106
  7. GADOLINIUM IN UNSPECIFIED DRUG [Suspect]
     Dosage: UNK
     Dates: start: 20000630, end: 20000630
  8. IRON [Concomitant]
  9. DIGOXIN [Concomitant]
  10. LEXAPRO [Concomitant]
  11. NORVASC [Concomitant]
  12. NEPHROCAPS [Concomitant]
     Dosage: UNK UNK, QD
  13. GADOLINIUM IN UNSPECIFIED DRUG [Suspect]
     Indication: NUCLEAR MAGNETIC RESONANCE IMAGING ABDOMINAL
     Dosage: UNK
     Dates: start: 19991112, end: 19991112
  14. INDERAL [Concomitant]
  15. LISINOPRIL [Concomitant]
  16. BUSPAR [Concomitant]
  17. WARFARIN [Concomitant]
     Dosage: 5 MG, QD
  18. PREDNISONE [Concomitant]
  19. IMMUNOSUPPRESSIVE AGENTS [Concomitant]
  20. LASIX [Concomitant]
  21. RENAGEL [Concomitant]
  22. MIDODRINE HYDROCHLORIDE [Concomitant]
     Dosage: 15 MG, 3 TIMES A WEEK
  23. EPOGEN [Concomitant]
  24. GADOLINIUM IN UNSPECIFIED DRUG [Suspect]
     Dosage: UNK
     Dates: start: 20010731, end: 20010731
  25. VASOTEC [Concomitant]
  26. SENSIPAR [Concomitant]
  27. TOPROL-XL [Concomitant]
  28. MAG-TAB [Concomitant]
     Dosage: 84 MG, BID

REACTIONS (11)
  - SKIN INDURATION [None]
  - ANXIETY [None]
  - SKIN HYPERTROPHY [None]
  - IMPAIRED HEALING [None]
  - NEPHROGENIC SYSTEMIC FIBROSIS [None]
  - INJURY [None]
  - PAIN [None]
  - EMOTIONAL DISTRESS [None]
  - ANHEDONIA [None]
  - MUSCLE RIGIDITY [None]
  - DISABILITY [None]
